FAERS Safety Report 10962151 (Version 2)
Quarter: 2015Q2

REPORT INFORMATION
  Report Type: Spontaneous
  Country: FR (occurrence: FR)
  Receive Date: 20150327
  Receipt Date: 20150508
  Transmission Date: 20150821
  Serious: Yes (Other)
  Sender: FDA-Public Use
  Company Number: FR-JNJFOC-20150319141

PATIENT
  Age: 35 Year
  Sex: Male

DRUGS (1)
  1. SIMPONI [Suspect]
     Active Substance: GOLIMUMAB
     Indication: SPONDYLOARTHROPATHY
     Route: 058
     Dates: start: 20141215, end: 20150219

REACTIONS (5)
  - Paradoxical drug reaction [Recovering/Resolving]
  - Psoriasis [Recovering/Resolving]
  - Balanoposthitis [Recovering/Resolving]
  - Mucosal inflammation [Recovering/Resolving]
  - Pustular psoriasis [Recovering/Resolving]

NARRATIVE: CASE EVENT DATE: 201502
